FAERS Safety Report 9473587 (Version 1)
Quarter: 2013Q3

REPORT INFORMATION
  Report Type: Report from Study
  Country: DE (occurrence: DE)
  Receive Date: 20130823
  Receipt Date: 20130823
  Transmission Date: 20140515
  Serious: Yes (Hospitalization)
  Sender: FDA-Public Use
  Company Number: DE-SANOFI-AVENTIS-2013SA082225

PATIENT
  Age: 82 Year
  Sex: Male
  Weight: 95 kg

DRUGS (13)
  1. MULTAQ [Suspect]
     Indication: ATRIAL FIBRILLATION
     Route: 065
     Dates: start: 20120529, end: 20121025
  2. MADOPAR [Concomitant]
  3. TOREM [Concomitant]
  4. INSULIN [Concomitant]
  5. DECORTIN [Concomitant]
  6. SINGULAIR [Concomitant]
  7. ALFUZOSIN HYDROCHLORIDE [Concomitant]
  8. TAMSULOSIN [Concomitant]
  9. FORADIL [Concomitant]
  10. PULMICORT [Concomitant]
  11. RAMIPRIL [Concomitant]
  12. PLATELET AGGREGATION INHIBITORS [Concomitant]
     Dates: start: 20121025
  13. PROTEIN C (COAGULATION INHIBITOR)/FACTOR X (STUART PROWER FACTOR)/FACTOR VII (PROCONVERTIN)/FACTOR I [Concomitant]
     Dates: start: 20120202

REACTIONS (3)
  - Atrial fibrillation [Unknown]
  - Lumbar vertebral fracture [Unknown]
  - Syncope [Unknown]
